FAERS Safety Report 5735354-7 (Version None)
Quarter: 2008Q2

REPORT INFORMATION
  Report Type: 
  Country: None (occurrence: None)
  Receive Date: 20080505
  Receipt Date: 20080328
  Transmission Date: 20081010
  Serious: Yes (Other)
  Sender: FDA-Public Use
  Company Number: PHEH2008US03067

PATIENT
  Age: 74 Year
  Sex: Male

DRUGS (2)
  1. EXELON [Suspect]
     Indication: MEMORY IMPAIRMENT
     Dosage: 4.6 MG, QD, TRANSDERMAL ; 9.5 MG, QD, TRANSDERMAL
     Route: 062
     Dates: start: 20080201, end: 20080301
  2. EXELON [Suspect]
     Indication: MEMORY IMPAIRMENT
     Dosage: 4.6 MG, QD, TRANSDERMAL ; 9.5 MG, QD, TRANSDERMAL
     Route: 062
     Dates: start: 20080301, end: 20080301

REACTIONS (5)
  - ABNORMAL DREAMS [None]
  - DIZZINESS [None]
  - DYSPNOEA [None]
  - ERYTHEMA [None]
  - HALLUCINATION [None]
